FAERS Safety Report 8167637-8 (Version None)
Quarter: 2012Q1

REPORT INFORMATION
  Report Type: 
  Country: None (occurrence: None)
  Receive Date: 20120103
  Receipt Date: 20111207
  Transmission Date: 20120608
  Serious: No
  Sender: FDA-Public Use
  Company Number: AE-2011-002147

PATIENT
  Age: 52 Year
  Sex: Male
  Weight: 95.2554 kg

DRUGS (5)
  1. RIBAVIRIN [Concomitant]
  2. INCIVEK [Suspect]
     Dosage: 2250 MG (750 MG,1 IN 8 HR),CAROL
     Route: 048
     Dates: start: 20111007
  3. PEGASYS (PEGINTERON ALFA-2A) [Concomitant]
  4. PROTONIX [Concomitant]
  5. LEVOTHYROXINE SODIUM [Concomitant]

REACTIONS (1)
  - INAPPROPRIATE SCHEDULE OF DRUG ADMINISTRATION [None]
